FAERS Safety Report 7307640-0 (Version None)
Quarter: 2011Q1

REPORT INFORMATION
  Report Type: 
  Country: None (occurrence: None)
  Receive Date: 20110223
  Receipt Date: 20110216
  Transmission Date: 20110831
  Serious: Yes (Other)
  Sender: FDA-Public Use
  Company Number: US-AMGEN-USASP2011008038

PATIENT
  Age: 40 Year
  Sex: Male

DRUGS (2)
  1. ENBREL [Suspect]
     Indication: ANKYLOSING SPONDYLITIS
     Dosage: 25 MG, 2 TIMES/WK
     Dates: start: 20070810
  2. GOLIMUMAB [Concomitant]

REACTIONS (9)
  - OEDEMA PERIPHERAL [None]
  - DEPRESSION [None]
  - THERAPEUTIC RESPONSE DECREASED [None]
  - ANKYLOSING SPONDYLITIS [None]
  - NODULE [None]
  - HYPOAESTHESIA [None]
  - INFLAMMATION [None]
  - MOOD SWINGS [None]
  - PAIN IN EXTREMITY [None]
